FAERS Safety Report 7518605-8 (Version None)
Quarter: 2011Q2

REPORT INFORMATION
  Report Type: 
  Country: None (occurrence: None)
  Receive Date: 20110602
  Receipt Date: 20110524
  Transmission Date: 20111010
  Serious: Yes (Hospitalization)
  Sender: FDA-Public Use
  Company Number: FR-KINGPHARMUSA00001-K201100641

PATIENT
  Age: 69 Year
  Sex: Male

DRUGS (6)
  1. LASIX [Concomitant]
  2. LUVION [Suspect]
     Indication: HYPERTENSIVE HEART DISEASE
     Dosage: 50 MG, QD
     Route: 048
     Dates: start: 20110427, end: 20110508
  3. ASCRIPTIN [Suspect]
     Indication: HYPERTENSIVE HEART DISEASE
     Dosage: UNK, QD
     Route: 048
     Dates: start: 20101010, end: 20110501
  4. ALTACE [Suspect]
     Indication: HYPERTENSIVE HEART DISEASE
     Dosage: 5 MG, QD
     Route: 048
     Dates: start: 20101010, end: 20110502
  5. LANSOX [Concomitant]
  6. CARVEDILOL [Concomitant]
     Dosage: UNK
     Dates: start: 20110427, end: 20110508

REACTIONS (6)
  - HYPERKALAEMIA [None]
  - DRUG INEFFECTIVE [None]
  - DECREASED APPETITE [None]
  - RENAL FAILURE ACUTE [None]
  - DYSPNOEA [None]
  - METABOLIC ACIDOSIS [None]
